FAERS Safety Report 9259120 (Version 1)
Quarter: 2013Q2

REPORT INFORMATION
  Report Type: Spontaneous
  Country: US (occurrence: US)
  Receive Date: 20130426
  Receipt Date: 20130426
  Transmission Date: 20140414
  Serious: Yes (Hospitalization)
  Sender: FDA-Public Use
  Company Number: US-ASTRAZENECA-2013SE26880

PATIENT
  Age: 89 Year
  Sex: Female
  Weight: 59 kg

DRUGS (7)
  1. LISINOPRIL [Suspect]
     Indication: HYPERTENSION
     Route: 048
  2. SYMBICORT [Suspect]
     Indication: LUNG INFECTION
     Dosage: 160 MCG, 1 PUFF BID
     Route: 055
     Dates: start: 20130416, end: 20130416
  3. LIPITOR [Concomitant]
     Indication: BLOOD CHOLESTEROL ABNORMAL
     Route: 048
     Dates: start: 201304
  4. SINEMET [Concomitant]
     Indication: PARKINSON^S DISEASE
     Dosage: 25/100, EVERY 5 HOURS INCLUDING AT 10 AM, 3 PM, AND 8 PM.
     Route: 048
  5. ZITHROMAX [Concomitant]
     Indication: LUNG INFECTION
     Route: 048
  6. BABY ASPIRIN [Concomitant]
     Route: 048
  7. SPIRIVA [Concomitant]
     Dosage: PRN
     Route: 055

REACTIONS (8)
  - Pneumonia [Unknown]
  - Tremor [Recovering/Resolving]
  - Gait disturbance [Unknown]
  - Insomnia [Unknown]
  - Fear of falling [Unknown]
  - Urinary tract infection [Recovered/Resolved]
  - Off label use [Unknown]
  - Off label use [Unknown]
